FAERS Safety Report 13862895 (Version 1)
Quarter: 2017Q3

REPORT INFORMATION
  Report Type: Spontaneous
  Country: CA (occurrence: CA)
  Receive Date: 20170814
  Receipt Date: 20170814
  Transmission Date: 20171127
  Serious: Yes (Other)
  Sender: FDA-Public Use
  Company Number: CA-009507513-1708CAN005458

PATIENT
  Age: 64 Year
  Sex: Male
  Weight: 100 kg

DRUGS (14)
  1. PANTOPRAZOLE [Concomitant]
     Active Substance: PANTOPRAZOLE
  2. VENLAFAXINE HYDROCHLORIDE. [Concomitant]
     Active Substance: VENLAFAXINE HYDROCHLORIDE
  3. METOPROLOL. [Concomitant]
     Active Substance: METOPROLOL
  4. MEROPENEM. [Concomitant]
     Active Substance: MEROPENEM
  5. MIRTAZAPINE. [Concomitant]
     Active Substance: MIRTAZAPINE
  6. HEPARIN SODIUM. [Concomitant]
     Active Substance: HEPARIN SODIUM
     Dosage: DOSAGE FORM: SOLUTION INTRAVENOUS
  7. LOPERAMIDE [Concomitant]
     Active Substance: LOPERAMIDE
  8. ZOPICLONE [Concomitant]
     Active Substance: ZOPICLONE
  9. METRONIDAZOLE. [Concomitant]
     Active Substance: METRONIDAZOLE
  10. SULFAMETHOXAZOLE (+) TRIMETHOPRIM [Concomitant]
     Active Substance: SULFAMETHOXAZOLE\TRIMETHOPRIM
  11. CUBICIN [Suspect]
     Active Substance: DAPTOMYCIN
     Indication: ENTEROCOCCAL INFECTION
     Dosage: 800 MG, QD
     Route: 042
  12. CUBICIN [Suspect]
     Active Substance: DAPTOMYCIN
     Indication: ABDOMINAL ABSCESS
  13. FENOFIBRATE. [Concomitant]
     Active Substance: FENOFIBRATE
  14. CILASTATIN SODIUM (+) IMIPENEM [Concomitant]
     Active Substance: CILASTATIN SODIUM\IMIPENEM

REACTIONS (8)
  - Eosinophilic pneumonia [Recovering/Resolving]
  - Lung consolidation [Recovering/Resolving]
  - Organising pneumonia [Recovering/Resolving]
  - Pneumonia [Recovering/Resolving]
  - Blood creatine phosphokinase increased [Recovering/Resolving]
  - Alveolar lung disease [Recovering/Resolving]
  - Pyrexia [Recovering/Resolving]
  - Eosinophil count increased [Recovering/Resolving]
